FAERS Safety Report 11242778 (Version 1)
Quarter: 2015Q3

REPORT INFORMATION
  Report Type: Spontaneous
  Country: US (occurrence: None)
  Receive Date: 20150701
  Receipt Date: 20150701
  Transmission Date: 20151125
  Serious: Yes (Hospitalization)
  Sender: FDA-Public Use
  Company Number: None

PATIENT
  Age: 14 Year
  Sex: Female
  Weight: 58.2 kg

DRUGS (11)
  1. PREDNISONE. [Suspect]
     Active Substance: PREDNISONE
     Dates: end: 20100802
  2. DOXORUBICIN HYDROCHLORIDE. [Suspect]
     Active Substance: DOXORUBICIN HYDROCHLORIDE
     Dates: end: 20081112
  3. VINCRISTINE SULFATE. [Suspect]
     Active Substance: VINCRISTINE SULFATE
     Dates: end: 20100728
  4. CYCLOPHOSPHAMIDE. [Suspect]
     Active Substance: CYCLOPHOSPHAMIDE
     Dates: end: 20081203
  5. CYTARABINE. [Suspect]
     Active Substance: CYTARABINE
     Dates: end: 20081213
  6. THIOGUANINE (6-TG) [Suspect]
     Active Substance: THIOGUANINE
     Dates: end: 20081216
  7. METHOTREXATE [Suspect]
     Active Substance: METHOTREXATE
     Dates: end: 20100721
  8. PEG-L-ASPARAGINASE (K-H) [Suspect]
     Active Substance: PEGASPARGASE
     Dates: end: 20081217
  9. DAUNORUBICIN [Suspect]
     Active Substance: DAUNORUBICIN
     Dates: end: 20080505
  10. DEXAMETHASONE. [Suspect]
     Active Substance: DEXAMETHASONE
     Dates: end: 20081118
  11. MERCAPTOPURINE. [Suspect]
     Active Substance: MERCAPTOPURINE
     Dates: end: 20100728

REACTIONS (5)
  - Headache [None]
  - Hypoaesthesia [None]
  - Muscular weakness [None]
  - Cerebral haemorrhage [None]
  - Dysarthria [None]

NARRATIVE: CASE EVENT DATE: 20150605
